FAERS Safety Report 4946791-2 (Version None)
Quarter: 2006Q1

REPORT INFORMATION
  Report Type: 
  Country: None (occurrence: None)
  Receive Date: 20060317
  Receipt Date: 20060209
  Transmission Date: 20060701
  Serious: Yes (Death, Hospitalization)
  Sender: FDA-Public Use
  Company Number: US-MERCK-0602USA02450

PATIENT
  Age: 63 Year
  Sex: Male
  Weight: 80 kg

DRUGS (5)
  1. VIOXX [Suspect]
     Route: 048
     Dates: start: 20000101, end: 20030201
  2. GEMFIBROZIL [Concomitant]
     Route: 065
  3. PRAVACHOL [Concomitant]
     Route: 065
  4. HYTRIN [Concomitant]
     Route: 065
  5. GLUCOTROL [Concomitant]
     Route: 065

REACTIONS (3)
  - DIABETES MELLITUS [None]
  - HYPERCHOLESTEROLAEMIA [None]
  - MYOCARDIAL INFARCTION [None]
